FAERS Safety Report 10929967 (Version 1)
Quarter: 2015Q1

REPORT INFORMATION
  Report Type: Spontaneous
  Country: None (occurrence: None)
  Receive Date: 20150318
  Receipt Date: 20150318
  Transmission Date: 20150721
  Serious: No
  Sender: FDA-Public Use
  Company Number: None

PATIENT
  Age: 40 Year
  Sex: Female
  Weight: 53.52 kg

DRUGS (1)
  1. ROPINIROLE. [Suspect]
     Active Substance: ROPINIROLE
     Indication: RESTLESS LEGS SYNDROME
     Dosage: 1 PILL
     Route: 048

REACTIONS (8)
  - Dizziness [None]
  - Hypophagia [None]
  - Vomiting [None]
  - Syncope [None]
  - Hypotension [None]
  - Muscle spasms [None]
  - Dysstasia [None]
  - Malaise [None]

NARRATIVE: CASE EVENT DATE: 20150316
